FAERS Safety Report 9003768 (Version 1)
Quarter: 2013Q1

REPORT INFORMATION
  Report Type: Spontaneous
  Country: US (occurrence: US)
  Receive Date: 20130108
  Receipt Date: 20130108
  Transmission Date: 20140127
  Serious: No
  Sender: FDA-Public Use
  Company Number: US-GLAXOSMITHKLINE-A0975143A

PATIENT
  Age: 64 Year
  Sex: Female

DRUGS (2)
  1. LOVAZA [Suspect]
     Indication: BLOOD CHOLESTEROL INCREASED
     Dosage: 4G UNKNOWN
     Route: 048
     Dates: end: 201203
  2. ZANTAC [Concomitant]

REACTIONS (2)
  - Dysphagia [Recovered/Resolved]
  - Drug administration error [Unknown]
